FAERS Safety Report 7340776-7 (Version None)
Quarter: 2011Q1

REPORT INFORMATION
  Report Type: 
  Country: None (occurrence: None)
  Receive Date: 20110228
  Receipt Date: 20110216
  Transmission Date: 20110831
  Serious: Yes (Hospitalization, Other)
  Sender: FDA-Public Use
  Company Number: 2010SP057916

PATIENT
  Age: 26 Year
  Sex: Female
  Weight: 67.1324 kg

DRUGS (1)
  1. NUVARING [Suspect]
     Indication: CONTRACEPTION
     Dates: start: 20080901, end: 20081111

REACTIONS (13)
  - PLEURITIC PAIN [None]
  - HEART RATE IRREGULAR [None]
  - PULMONARY EMBOLISM [None]
  - OVARIAN CYST [None]
  - NO THERAPEUTIC RESPONSE [None]
  - PHOTOPHOBIA [None]
  - URINARY TRACT INFECTION [None]
  - ANGINA PECTORIS [None]
  - MIGRAINE [None]
  - MENSTRUATION IRREGULAR [None]
  - STRESS [None]
  - ARRHYTHMIA [None]
  - MUSCULOSKELETAL CHEST PAIN [None]
